FAERS Safety Report 17359326 (Version 2)
Quarter: 2020Q1

REPORT INFORMATION
  Report Type: Report from Study
  Country: FR (occurrence: FR)
  Receive Date: 20200203
  Receipt Date: 20200210
  Transmission Date: 20200409
  Serious: Yes (Hospitalization)
  Sender: FDA-Public Use
  Company Number: FR-ROCHE-2532834

PATIENT
  Age: 46 Year
  Sex: Female

DRUGS (5)
  1. XANAX [Concomitant]
     Active Substance: ALPRAZOLAM
     Indication: ANXIETY
     Route: 048
     Dates: start: 201812
  2. BLINDED ATEZOLIZUMAB [Suspect]
     Active Substance: ATEZOLIZUMAB
     Indication: OVARIAN CANCER
     Dosage: ON 07/JAN/2020, SHE RECEIVED LAST DOSE OF BLINDED ATEZOLIZUMAB BEFORE THE EVENT.
     Route: 042
     Dates: start: 20190114
  3. CARBOPLATIN. [Concomitant]
     Active Substance: CARBOPLATIN
     Indication: OVARIAN CANCER
     Route: 042
     Dates: start: 20190114
  4. BEVACIZUMAB. [Suspect]
     Active Substance: BEVACIZUMAB
     Indication: OVARIAN CANCER
     Dosage: ON 07/JAN/2020, SHE RECEIVED LAST DOSE OF BEVACIZUMAB (15 MG/KG) BEFORE THE EVENT.
     Route: 042
     Dates: start: 20190114
  5. PEGYLATED LIPOSOMAL DOXORUBICIN [Concomitant]
     Active Substance: DOXORUBICIN
     Route: 042
     Dates: start: 20190114

REACTIONS (1)
  - Splenic haematoma [Recovered/Resolved]

NARRATIVE: CASE EVENT DATE: 20200113
